FAERS Safety Report 6370972-7 (Version None)
Quarter: 2009Q3

REPORT INFORMATION
  Report Type: 
  Country: None (occurrence: None)
  Receive Date: 20090923
  Receipt Date: 20071003
  Transmission Date: 20100115
  Serious: Yes (Hospitalization, Other)
  Sender: FDA-Public Use
  Company Number: US-ASTRAZENECA-2006UW22930

PATIENT
  Age: 408 Month
  Sex: Female
  Weight: 136.1 kg

DRUGS (19)
  1. SEROQUEL [Suspect]
     Indication: DEPRESSION
     Route: 048
     Dates: start: 20000725, end: 20001018
  2. SEROQUEL [Suspect]
     Indication: SCHIZOPHRENIA
     Route: 048
     Dates: start: 20000725, end: 20001018
  3. SEROQUEL [Suspect]
     Indication: PARANOIA
     Route: 048
     Dates: start: 20000725, end: 20001018
  4. SEROQUEL [Suspect]
     Route: 048
     Dates: start: 20060101
  5. SEROQUEL [Suspect]
     Route: 048
     Dates: start: 20060101
  6. SEROQUEL [Suspect]
     Route: 048
     Dates: start: 20060101
  7. LOXAPINE [Concomitant]
  8. PROZAC [Concomitant]
  9. LOPRESSOR [Concomitant]
  10. KLONOPIN [Concomitant]
  11. REMERON [Concomitant]
  12. CARDIZEM [Concomitant]
  13. TRICOR [Concomitant]
  14. AMBIEN [Concomitant]
  15. CALAN [Concomitant]
  16. IMITREX [Concomitant]
  17. TOPAMAX [Concomitant]
  18. GLUCOPHAGE [Concomitant]
  19. ACTOS [Concomitant]
     Dosage: 30-45 MG

REACTIONS (3)
  - DIABETES MELLITUS [None]
  - DIABETES MELLITUS INADEQUATE CONTROL [None]
  - HYPOGLYCAEMIA [None]
